FAERS Safety Report 4418606-2 (Version None)
Quarter: 2004Q3

REPORT INFORMATION
  Report Type: 
  Country: None (occurrence: None)
  Receive Date: 20040809
  Receipt Date: 20030807
  Transmission Date: 20050211
  Serious: Yes (Hospitalization)
  Sender: FDA-Public Use
  Company Number: US-GLAXOSMITHKLINE-A0420148A

PATIENT
  Sex: Female

DRUGS (4)
  1. PAXIL [Suspect]
     Indication: DEPRESSION
     Dosage: 30MG IN THE MORNING
     Route: 048
     Dates: start: 20000929
  2. PAXIL CR [Suspect]
     Indication: DEPRESSION
     Dosage: 37.5MG IN THE MORNING
     Route: 048
     Dates: start: 20021219
  3. WELLBUTRIN SR [Concomitant]
     Indication: DEPRESSION
     Dosage: 100MG IN THE MORNING
     Route: 048
     Dates: start: 20020829
  4. PROTONIX [Concomitant]

REACTIONS (2)
  - ANXIETY [None]
  - DRUG WITHDRAWAL SYNDROME [None]
